FAERS Safety Report 18276294 (Version 1)
Quarter: 2020Q3

REPORT INFORMATION
  Report Type: Spontaneous
  Country: FR (occurrence: FR)
  Receive Date: 20200917
  Receipt Date: 20200917
  Transmission Date: 20201103
  Serious: Yes (Hospitalization)
  Sender: FDA-Public Use
  Company Number: FR-HIKMA PHARMACEUTICALS USA INC.-FR-H14001-20-52077

PATIENT
  Age: 54 Year
  Sex: Male

DRUGS (3)
  1. GENTAMICINE [Suspect]
     Active Substance: GENTAMICIN
     Indication: STAPHYLOCOCCAL INFECTION
     Dosage: UNKNOWN
     Route: 065
     Dates: start: 20200804, end: 20200808
  2. ORBENINE [Suspect]
     Active Substance: CLOXACILLIN SODIUM
     Indication: STAPHYLOCOCCAL INFECTION
     Dosage: UNKNOWN
     Route: 065
     Dates: start: 20200804
  3. VANCOMYCINE [Suspect]
     Active Substance: VANCOMYCIN
     Indication: STAPHYLOCOCCAL INFECTION
     Dosage: UNKNOWN
     Route: 065
     Dates: start: 20200804, end: 20200806

REACTIONS (1)
  - Rash pruritic [Unknown]

NARRATIVE: CASE EVENT DATE: 20200807
